FAERS Safety Report 9716455 (Version 2)
Quarter: 2013Q4

REPORT INFORMATION
  Report Type: Spontaneous
  Country: AU (occurrence: AU)
  Receive Date: 20131127
  Receipt Date: 20131127
  Transmission Date: 20140711
  Serious: Yes (Hospitalization, Other)
  Sender: FDA-Public Use
  Company Number: AU-VERTEX PHARMACEUTICALS INC-2013-011241

PATIENT
  Sex: Female

DRUGS (4)
  1. INCIVO [Suspect]
     Indication: HEPATITIS C
     Dosage: UNK
     Route: 065
  2. RIBAVIRIN [Suspect]
     Indication: HEPATITIS C
     Dosage: UNK
     Route: 065
  3. RIBAVIRIN [Suspect]
     Dosage: 200 MG, UNK
     Route: 065
  4. PEGINTERFERON ALFA [Suspect]
     Indication: HEPATITIS C
     Dosage: UNK
     Route: 065

REACTIONS (4)
  - Food allergy [Recovered/Resolved]
  - Swelling face [Unknown]
  - Haemoglobin decreased [Not Recovered/Not Resolved]
  - Off label use [Unknown]
